FAERS Safety Report 8504353-4 (Version None)
Quarter: 2012Q3

REPORT INFORMATION
  Report Type: 
  Country: None (occurrence: None)
  Receive Date: 20120711
  Receipt Date: 20120703
  Transmission Date: 20120928
  Serious: Yes (Hospitalization)
  Sender: FDA-Public Use
  Company Number: FR-GLAXOSMITHKLINE-Z0016183A

PATIENT
  Sex: Female
  Weight: 72 kg

DRUGS (2)
  1. BENDAMUSTINE HYDROCHLORIDE [Suspect]
     Indication: NON-HODGKIN'S LYMPHOMA
     Route: 042
     Dates: start: 20111025
  2. OFATUMUMAB [Suspect]
     Indication: NON-HODGKIN'S LYMPHOMA
     Route: 042
     Dates: start: 20111025

REACTIONS (1)
  - FEBRILE NEUTROPENIA [None]
